FAERS Safety Report 13791756 (Version 4)
Quarter: 2017Q3

REPORT INFORMATION
  Report Type: Report from Study
  Country: US (occurrence: US)
  Receive Date: 20170725
  Receipt Date: 20170828
  Transmission Date: 20171127
  Serious: Yes (Hospitalization, Other)
  Sender: FDA-Public Use
  Company Number: US-ACTELION-A-NJ2015-121172

PATIENT
  Age: 52 Year
  Sex: Female
  Weight: 83.9 kg

DRUGS (3)
  1. REVATIO [Concomitant]
     Active Substance: SILDENAFIL CITRATE
  2. COUMADIN [Concomitant]
     Active Substance: WARFARIN SODIUM
  3. TRACLEER [Suspect]
     Active Substance: BOSENTAN
     Indication: PULMONARY ARTERIAL HYPERTENSION
     Dosage: 125 MG, BID
     Route: 048
     Dates: start: 20040929

REACTIONS (17)
  - Confusional state [Unknown]
  - Swelling [Recovering/Resolving]
  - Feeling hot [Unknown]
  - Back pain [Unknown]
  - Oropharyngeal pain [Recovering/Resolving]
  - Aphasia [Unknown]
  - Dizziness [Unknown]
  - Seasonal allergy [Recovering/Resolving]
  - Dyspnoea [Recovering/Resolving]
  - Feeling abnormal [Unknown]
  - Eye irritation [Recovering/Resolving]
  - Pulmonary embolism [Unknown]
  - Pulmonary hypertension [Unknown]
  - Urinary tract infection [Unknown]
  - Pulmonary arterial pressure increased [Unknown]
  - Nasal congestion [Recovering/Resolving]
  - Intervertebral disc protrusion [Unknown]
